FAERS Safety Report 5342789-3 (Version None)
Quarter: 2007Q2

REPORT INFORMATION
  Report Type: 
  Country: None (occurrence: None)
  Receive Date: 20070601
  Receipt Date: 20070522
  Transmission Date: 20071010
  Serious: Yes (Death, Other)
  Sender: FDA-Public Use
  Company Number: US-PFIZER INC-2007042175

PATIENT
  Sex: Male

DRUGS (2)
  1. CHANTIX [Suspect]
     Indication: EX-SMOKER
  2. ANTIHYPERTENSIVES [Concomitant]

REACTIONS (2)
  - DEATH [None]
  - RESPIRATORY DISTRESS [None]
